FAERS Safety Report 7291207-7 (Version None)
Quarter: 2011Q1

REPORT INFORMATION
  Report Type: 
  Country: None (occurrence: None)
  Receive Date: 20110214
  Receipt Date: 20110204
  Transmission Date: 20110831
  Serious: Yes (Other)
  Sender: FDA-Public Use
  Company Number: US-ASTRAZENECA-2011SE07107

PATIENT
  Age: 66 Year
  Sex: Female

DRUGS (3)
  1. NEXIUM [Concomitant]
  2. PRILOSEC [Suspect]
     Route: 048
  3. ARIMIDEX [Interacting]
     Route: 048

REACTIONS (4)
  - ABDOMINAL DISCOMFORT [None]
  - BREAST CANCER [None]
  - DRUG INTERACTION [None]
  - IMPAIRED GASTRIC EMPTYING [None]
